FAERS Safety Report 21695218 (Version 1)
Quarter: 2022Q4

REPORT INFORMATION
  Report Type: Report from Study
  Country: CA (occurrence: CA)
  Receive Date: 20221207
  Receipt Date: 20221207
  Transmission Date: 20230113
  Serious: Yes (Hospitalization, Other)
  Sender: FDA-Public Use
  Company Number: CA-GILEAD-2022-0578157

PATIENT
  Age: 46 Year
  Sex: Female
  Weight: 122 kg

DRUGS (15)
  1. SACITUZUMAB GOVITECAN [Suspect]
     Active Substance: SACITUZUMAB GOVITECAN
     Indication: Triple negative breast cancer
     Dosage: 885 MG, C2D1
     Route: 042
     Dates: start: 20220427, end: 20220427
  2. SACITUZUMAB GOVITECAN [Suspect]
     Active Substance: SACITUZUMAB GOVITECAN
     Dosage: 1140 MG
     Route: 042
     Dates: start: 20220406
  3. SACITUZUMAB GOVITECAN [Suspect]
     Active Substance: SACITUZUMAB GOVITECAN
     Dosage: UNK, C1D8
     Route: 042
     Dates: start: 20220413, end: 20220413
  4. SACITUZUMAB GOVITECAN [Suspect]
     Active Substance: SACITUZUMAB GOVITECAN
     Dosage: 1100 MG
     Route: 042
  5. SACITUZUMAB GOVITECAN [Suspect]
     Active Substance: SACITUZUMAB GOVITECAN
     Dosage: 885 MG, C2D8
     Route: 042
     Dates: start: 20220518, end: 20220518
  6. SACITUZUMAB GOVITECAN [Suspect]
     Active Substance: SACITUZUMAB GOVITECAN
     Dosage: UNK, C2D8 AND C3 D1-D8
     Route: 042
     Dates: start: 20220525, end: 20220627
  7. SACITUZUMAB GOVITECAN [Suspect]
     Active Substance: SACITUZUMAB GOVITECAN
     Dosage: UNK
     Route: 042
     Dates: start: 20220615
  8. SACITUZUMAB GOVITECAN [Suspect]
     Active Substance: SACITUZUMAB GOVITECAN
     Dosage: UNK
     Route: 042
     Dates: start: 20220727
  9. SACITUZUMAB GOVITECAN [Suspect]
     Active Substance: SACITUZUMAB GOVITECAN
     Dosage: 885 MG, C4
     Route: 042
  10. SACITUZUMAB GOVITECAN [Suspect]
     Active Substance: SACITUZUMAB GOVITECAN
     Dosage: 885 MG
     Route: 042
  11. FILGRASTIM [Suspect]
     Active Substance: FILGRASTIM
     Indication: Neutrophil count decreased
     Route: 050
  12. DOXORUBICIN [Concomitant]
     Active Substance: DOXORUBICIN
  13. TAXOL [Concomitant]
     Active Substance: PACLITAXEL
  14. GEMCITABINE CISPLATIN [Concomitant]
  15. FASENRA [Concomitant]
     Active Substance: BENRALIZUMAB

REACTIONS (40)
  - Febrile neutropenia [Not Recovered/Not Resolved]
  - Disease progression [Unknown]
  - Liver disorder [Unknown]
  - Heart rate increased [Recovering/Resolving]
  - Heart rate increased [Unknown]
  - Heart rate increased [Unknown]
  - Heart rate increased [Unknown]
  - Heart rate increased [Unknown]
  - Heart rate increased [Unknown]
  - Heart rate increased [Unknown]
  - Heart rate increased [Unknown]
  - Hypertension [Unknown]
  - Hypertension [Unknown]
  - Hypertension [Unknown]
  - Hypertension [Unknown]
  - Catheter management [Recovered/Resolved]
  - Somnolence [Unknown]
  - Malaise [Unknown]
  - Malaise [Recovering/Resolving]
  - Neutrophil count decreased [Unknown]
  - Neutrophil count decreased [Not Recovered/Not Resolved]
  - Neutrophil count abnormal [Unknown]
  - White blood cell count decreased [Unknown]
  - Weight decreased [Unknown]
  - Weight decreased [Unknown]
  - Weight increased [Not Recovered/Not Resolved]
  - Weight fluctuation [Unknown]
  - Weight fluctuation [Unknown]
  - Weight fluctuation [Unknown]
  - Weight fluctuation [Unknown]
  - COVID-19 [Unknown]
  - Dry mouth [Unknown]
  - Dysphonia [Unknown]
  - Bone pain [Not Recovered/Not Resolved]
  - Diarrhoea [Not Recovered/Not Resolved]
  - Constipation [Unknown]
  - Alopecia [Unknown]
  - Heart rate increased [Unknown]
  - Weight fluctuation [Unknown]
  - Inappropriate schedule of product administration [Unknown]

NARRATIVE: CASE EVENT DATE: 20220401
